FAERS Safety Report 4476560-1 (Version None)
Quarter: 2004Q4

REPORT INFORMATION
  Report Type: 
  Country: None (occurrence: None)
  Receive Date: 20041013
  Receipt Date: 20040928
  Transmission Date: 20050328
  Serious: No
  Sender: FDA-Public Use
  Company Number: B0346605A

PATIENT

DRUGS (1)
  1. VINORELBINE TARTRATE INJECTION (GENERIC) (VINORELBINE TARTRATE) [Suspect]
     Indication: NEOPLASM
     Dosage: SEE DOSAGE TEXT/INTRAVENO
     Route: 042

REACTIONS (2)
  - ANAEMIA [None]
  - HAEMORRHAGE [None]
